FAERS Safety Report 6877388-5 (Version None)
Quarter: 2010Q3

REPORT INFORMATION
  Report Type: 
  Country: None (occurrence: None)
  Receive Date: 20100727
  Receipt Date: 20091016
  Transmission Date: 20110219
  Serious: No
  Sender: FDA-Public Use
  Company Number: US-ABBOTT-09P-163-0603748-00

PATIENT
  Age: 30 Year
  Sex: Male

DRUGS (1)
  1. SYNTHROID [Suspect]
     Indication: HYPOTHYROIDISM
     Dosage: UNSURE OF STRENGTH
     Route: 048
     Dates: start: 19780101

REACTIONS (1)
  - DRUG EFFECT DECREASED [None]
